FAERS Safety Report 25824330 (Version 1)
Quarter: 2025Q3

REPORT INFORMATION
  Report Type: Report from Study
  Country: TH (occurrence: TH)
  Receive Date: 20250919
  Receipt Date: 20250919
  Transmission Date: 20251021
  Serious: Yes (Hospitalization)
  Sender: EXELIXIS
  Company Number: TH-IPSEN Group, Research and Development-2025-22698

PATIENT
  Age: 81 Year
  Sex: Female

DRUGS (3)
  1. CABOMETYX [Suspect]
     Active Substance: CABOZANTINIB S-MALATE
     Indication: Renal cell carcinoma
     Dosage: DAILY
     Route: 048
     Dates: start: 20250717, end: 20250814
  2. CABOMETYX [Suspect]
     Active Substance: CABOZANTINIB S-MALATE
     Route: 048
     Dates: start: 20250814
  3. NIVOLUMAB [Suspect]
     Active Substance: NIVOLUMAB
     Indication: Renal cell carcinoma
     Route: 042

REACTIONS (6)
  - Somnolence [Unknown]
  - Rash pruritic [Unknown]
  - Decreased appetite [Unknown]
  - Fatigue [Unknown]
  - Constipation [Unknown]
  - Off label use [Unknown]

NARRATIVE: CASE EVENT DATE: 20250813
